FAERS Safety Report 7814512-1 (Version None)
Quarter: 2011Q4

REPORT INFORMATION
  Report Type: 
  Country: None (occurrence: None)
  Receive Date: 20111012
  Receipt Date: 20110929
  Transmission Date: 20120403
  Serious: Yes (Hospitalization, Disabling, Other)
  Sender: FDA-Public Use
  Company Number: 2011P1009185

PATIENT
  Sex: Female

DRUGS (1)
  1. FENTANYL [Suspect]
     Dosage: TDER
     Route: 062
     Dates: start: 20100408, end: 20100419

REACTIONS (9)
  - PRODUCT QUALITY ISSUE [None]
  - MULTIPLE INJURIES [None]
  - LOSS OF CONSCIOUSNESS [None]
  - SYNCOPE [None]
  - HEMIPARESIS [None]
  - MENTAL STATUS CHANGES [None]
  - CONVULSION [None]
  - ANXIETY [None]
  - FALL [None]
